FAERS Safety Report 10289305 (Version 1)
Quarter: 2014Q3

REPORT INFORMATION
  Report Type: Spontaneous
  Country: US (occurrence: US)
  Receive Date: 20140710
  Receipt Date: 20140710
  Transmission Date: 20150326
  Serious: No
  Sender: FDA-Public Use
  Company Number: US-BIOGENIDEC-2014BI060587

PATIENT
  Sex: Female
  Weight: 86 kg

DRUGS (2)
  1. VITAMIN D [Concomitant]
     Active Substance: CHOLECALCIFEROL
  2. TECFIDERA [Suspect]
     Active Substance: DIMETHYL FUMARATE
     Indication: PRODUCT USED FOR UNKNOWN INDICATION
     Route: 048

REACTIONS (7)
  - Irritability [Unknown]
  - Accidental overdose [Unknown]
  - Paraesthesia [Unknown]
  - Pain of skin [Unknown]
  - Flushing [Unknown]
  - Erythema [Unknown]
  - Abdominal pain upper [Unknown]
